FAERS Safety Report 13382582 (Version 10)
Quarter: 2020Q3

REPORT INFORMATION
  Report Type: Report from Study
  Country: US (occurrence: US)
  Receive Date: 20170329
  Receipt Date: 20200707
  Transmission Date: 20201102
  Serious: Yes (Other)
  Sender: FDA-Public Use
  Company Number: PHHY2017US043724

PATIENT
  Age: 28 Year
  Sex: Female

DRUGS (3)
  1. TRAZODONE [Concomitant]
     Active Substance: TRAZODONE HYDROCHLORIDE
     Indication: INSOMNIA
     Dosage: UNK
     Route: 065
     Dates: start: 20180321
  2. GILENYA [Suspect]
     Active Substance: FINGOLIMOD HYDROCHLORIDE
     Indication: MULTIPLE SCLEROSIS
     Dosage: QD
     Route: 048
  3. ZOLPIDEM [Concomitant]
     Active Substance: ZOLPIDEM TARTRATE
     Indication: INSOMNIA
     Dosage: UNK
     Route: 065
     Dates: start: 20170110, end: 20180331

REACTIONS (37)
  - Neoplasm skin [Not Recovered/Not Resolved]
  - Acne [Not Recovered/Not Resolved]
  - Vertigo [Recovered/Resolved]
  - Cystitis [Recovered/Resolved]
  - Dizziness [Recovered/Resolved]
  - Carbon dioxide abnormal [Recovered/Resolved]
  - Lhermitte^s sign [Recovered/Resolved]
  - Blood potassium decreased [Recovered/Resolved]
  - Seborrhoeic keratosis [Not Recovered/Not Resolved]
  - Sinusitis [Recovered/Resolved]
  - Dysaesthesia [Recovered/Resolved]
  - Aspartate aminotransferase decreased [Recovered/Resolved]
  - Vertebral foraminal stenosis [Not Recovered/Not Resolved]
  - Ear pain [Recovered/Resolved]
  - Urinary incontinence [Recovered/Resolved]
  - Upper respiratory tract infection [Recovered/Resolved]
  - Haemangioma of skin [Not Recovered/Not Resolved]
  - Pain in extremity [Recovered/Resolved]
  - Eustachian tube dysfunction [Recovered/Resolved]
  - Blood cholesterol increased [Unknown]
  - Low density lipoprotein increased [Unknown]
  - Anion gap increased [Recovered/Resolved]
  - Muscle contractions involuntary [Recovered/Resolved]
  - Muscle spasticity [Recovered/Resolved]
  - Actinic keratosis [Not Recovered/Not Resolved]
  - Fatigue [Recovered/Resolved]
  - Juvenile melanoma benign [Recovered/Resolved]
  - Amenorrhoea [Recovered/Resolved]
  - Blood glucose increased [Recovered/Resolved]
  - Dysaesthesia [Recovered/Resolved]
  - Muscular weakness [Not Recovered/Not Resolved]
  - Acrochordon [Recovered/Resolved]
  - Lymphopenia [Not Recovered/Not Resolved]
  - Melanocytic naevus [Not Recovered/Not Resolved]
  - Urinary tract infection [Recovered/Resolved]
  - Eczema [Not Recovered/Not Resolved]
  - Dyspepsia [Recovered/Resolved]

NARRATIVE: CASE EVENT DATE: 20161220
